FAERS Safety Report 15361239 (Version 1)
Quarter: 2018Q3

REPORT INFORMATION
  Report Type: Spontaneous
  Country: US (occurrence: US)
  Receive Date: 20180831
  Receipt Date: 20180831
  Transmission Date: 20181010
  Serious: No
  Sender: FDA-Public Use
  Company Number: None

PATIENT
  Age: 35 Year
  Sex: Female

DRUGS (1)
  1. METHOTREXATE ? UNKNOWN [Suspect]
     Active Substance: METHOTREXATE
     Indication: PSORIASIS

REACTIONS (2)
  - Swelling [None]
  - Urine output decreased [None]
